FAERS Safety Report 9876889 (Version 2)
Quarter: 2014Q1

REPORT INFORMATION
  Report Type: Other
  Country: US (occurrence: US)
  Receive Date: 20140206
  Receipt Date: 20140206
  Transmission Date: 20141002
  Serious: No
  Sender: FDA-Public Use
  Company Number: US-ACORDA-ACO_38286_2013

PATIENT
  Age: 65 Year
  Sex: Female
  Weight: 104.31 kg

DRUGS (2)
  1. AMPYRA [Suspect]
     Indication: GAIT DISTURBANCE
     Dosage: 10 MG, BID
     Route: 048
     Dates: start: 201308
  2. MAXALT [Concomitant]
     Indication: MIGRAINE
     Dosage: UNK, PRN

REACTIONS (2)
  - Food poisoning [Recovered/Resolved]
  - Urinary tract infection [Not Recovered/Not Resolved]
